FAERS Safety Report 7283761-6 (Version None)
Quarter: 2011Q1

REPORT INFORMATION
  Report Type: 
  Country: None (occurrence: None)
  Receive Date: 20110126
  Receipt Date: 20110114
  Transmission Date: 20110831
  Serious: Yes (Death)
  Sender: FDA-Public Use
  Company Number: B0695661A

PATIENT
  Age: 25 Year
  Sex: Male

DRUGS (3)
  1. PSEUDOPHEDRINE (FORMULATION UNKNOWN) (PSEUDOPHEDRINE) [Suspect]
     Dosage: ORAL
     Route: 048
  2. PROPAFENONE HYDROCHLORIDE [Suspect]
     Dosage: ORAL
     Route: 048
  3. DIPHENHYDRAMINE HCL [Suspect]
     Dosage: ORAL
     Route: 048

REACTIONS (1)
  - COMPLETED SUICIDE [None]
